FAERS Safety Report 6471265-X (Version None)
Quarter: 2009Q4

REPORT INFORMATION
  Report Type: 
  Country: None (occurrence: None)
  Receive Date: 20091203
  Receipt Date: 20080221
  Transmission Date: 20100525
  Serious: Yes (Other)
  Sender: FDA-Public Use
  Company Number: NL-ELI_LILLY_AND_COMPANY-NL200802005161

PATIENT
  Age: 10 Year
  Sex: Male

DRUGS (2)
  1. STRATTERA [Suspect]
     Indication: ATTENTION DEFICIT/HYPERACTIVITY DISORDER
     Dosage: 1 MG/KG, DAILY (1/D)
     Route: 065
     Dates: start: 20070101
  2. PARACETAMOL [Concomitant]
     Dosage: UNK, UNKNOWN
     Route: 065

REACTIONS (3)
  - ABDOMINAL PAIN [None]
  - HYPERTENSION [None]
  - MIGRAINE WITH AURA [None]
